FAERS Safety Report 7806549-3 (Version None)
Quarter: 2011Q4

REPORT INFORMATION
  Report Type: 
  Country: None (occurrence: None)
  Receive Date: 20111011
  Receipt Date: 20110926
  Transmission Date: 20120403
  Serious: Yes (Life-Threatening, Hospitalization)
  Sender: FDA-Public Use
  Company Number: GB-TYCO HEALTHCARE/MALLINCKRODT-T201101250

PATIENT
  Sex: Female
  Weight: 60 kg

DRUGS (1)
  1. OPTIRAY 160 [Suspect]
     Indication: COMPUTERISED TOMOGRAM KIDNEY
     Dosage: 97 ML, SINGLE
     Route: 042
     Dates: start: 20110612, end: 20110612

REACTIONS (4)
  - THROAT IRRITATION [None]
  - COUGH [None]
  - LIP PRURITUS [None]
  - EYE PRURITUS [None]
